FAERS Safety Report 9195423 (Version 1)
Quarter: 2013Q1

REPORT INFORMATION
  Report Type: Spontaneous
  Country: US (occurrence: US)
  Receive Date: 20130328
  Receipt Date: 20130328
  Transmission Date: 20140127
  Serious: Yes (Hospitalization)
  Sender: FDA-Public Use
  Company Number: US-AMGEN-USASP2013019612

PATIENT
  Age: 66 Year
  Sex: Male
  Weight: 90.7 kg

DRUGS (6)
  1. ENBREL [Suspect]
     Indication: PRODUCT USED FOR UNKNOWN INDICATION
     Dosage: 50 MG, EVERY WEEK
     Route: 058
     Dates: end: 20130318
  2. LIPITOR [Concomitant]
     Dosage: 20 MG, UNK
  3. LEFLUNOMIDE [Concomitant]
     Dosage: 10 MG, UNK
  4. LISINOPRIL [Concomitant]
     Dosage: 20 MG, UNK
  5. CALCIUM [Concomitant]
     Dosage: 1200 UNK, UNK
  6. ASPIRIN [Concomitant]
     Dosage: 81 MG, UNK

REACTIONS (3)
  - Cellulitis [Recovered/Resolved]
  - Back pain [Recovered/Resolved]
  - Nasopharyngitis [Not Recovered/Not Resolved]
